FAERS Safety Report 7632467-X (Version None)
Quarter: 2011Q3

REPORT INFORMATION
  Report Type: 
  Country: None (occurrence: None)
  Receive Date: 20110725
  Receipt Date: 20100929
  Transmission Date: 20111222
  Serious: No
  Sender: FDA-Public Use
  Company Number: US-BRISTOL-MYERS SQUIBB COMPANY-15287592

PATIENT
  Age: 81 Year
  Sex: Male
  Weight: 56 kg

DRUGS (8)
  1. POTASSIUM [Concomitant]
  2. VITAMIN TAB [Concomitant]
  3. KLOR-CON [Concomitant]
  4. LASIX [Concomitant]
  5. COUMADIN [Suspect]
     Indication: ATRIAL FIBRILLATION
     Dosage: 1DF=INCREASED TO 7.5MG EVERY OTHER DAY AND 5MG REST OF THE DAYS.NOW 5MG DAILY
     Dates: start: 20100501
  6. MOTRIN [Concomitant]
  7. LISINOPRIL [Concomitant]
  8. METOPROLOL TARTRATE [Concomitant]

REACTIONS (1)
  - INTERNATIONAL NORMALISED RATIO INCREASED [None]
